FAERS Safety Report 5930793-3 (Version None)
Quarter: 2008Q4

REPORT INFORMATION
  Report Type: 
  Country: None (occurrence: None)
  Receive Date: 20081027
  Receipt Date: 20081016
  Transmission Date: 20090506
  Serious: Yes (Death, Hospitalization)
  Sender: FDA-Public Use
  Company Number: US-ROCHE-545377

PATIENT
  Sex: Female
  Weight: 46 kg

DRUGS (24)
  1. CAPECITABINE [Suspect]
     Indication: PANCREATIC CARCINOMA
     Dosage: GIVEN FOR 14 DAYS, FOLLOWED BY 7 DAYS OFF.
     Route: 048
     Dates: start: 20070816, end: 20071003
  2. CAPECITABINE [Suspect]
     Dosage: GIVEN FOR 14 DAYS, FOLLOWED BY 7 DAYS OFF.
     Route: 048
     Dates: start: 20071004, end: 20071108
  3. CAPECITABINE [Suspect]
     Dosage: GIVEN FOR 14 DAYS, FOLLOWED BY 7 DAYS OFF.
     Route: 048
     Dates: start: 20071109, end: 20080118
  4. SU11248 [Suspect]
     Indication: PANCREATIC CARCINOMA
     Dosage: GIVEN FOR 14 DAYS, FOLLOWED BY 7 DAYS OFF.
     Route: 048
     Dates: start: 20070817, end: 20071108
  5. SU11248 [Suspect]
     Dosage: GIVEN FOR 14 DAYS, FOLLOWED BY 7 DAYS OFF.
     Route: 048
     Dates: start: 20071109, end: 20071128
  6. SU11248 [Suspect]
     Dosage: GIVEN FOR 14 DAYS, FOLLOWED BY 7 DAYS OFF.
     Route: 048
     Dates: start: 20071129, end: 20080118
  7. PAXIL CR [Concomitant]
     Route: 048
     Dates: start: 20000101
  8. TRAZODONE HCL [Concomitant]
     Route: 048
     Dates: start: 20000101
  9. PREVACID [Concomitant]
     Route: 048
     Dates: start: 20000101
  10. METHYLSULFONYLMETHANE [Concomitant]
     Route: 048
     Dates: start: 20020101
  11. VITAMIN E [Concomitant]
     Route: 048
     Dates: start: 20000101
  12. CENTRUM [Concomitant]
     Route: 048
     Dates: start: 20000101
  13. CHONDROITIN/GLUCOSAMINE [Concomitant]
     Route: 048
     Dates: start: 19950101
  14. VITAMIN B COMPLEX CAP [Concomitant]
     Route: 048
     Dates: start: 20000101
  15. CALCIUM [Concomitant]
     Route: 048
     Dates: start: 20000101
  16. VITAMIN D [Concomitant]
     Dosage: DRUG: VITAMIN D
     Route: 048
     Dates: start: 20000101
  17. MACROGOL [Concomitant]
     Route: 048
     Dates: start: 20070101
  18. MORPHINE [Concomitant]
     Route: 048
     Dates: start: 20070701
  19. LOPERAMIDE HCL [Concomitant]
     Route: 048
     Dates: start: 20070827
  20. ALDACTONE [Concomitant]
     Route: 048
     Dates: start: 20071129
  21. GLYCOLAX [Concomitant]
  22. GLYCOLAX [Concomitant]
     Dosage: GENERIC NAME: POLYETHYLENE GLYCOL 3350
  23. IMODIUM [Concomitant]
  24. 1 CONCOMITANT DRUG [Concomitant]
     Dosage: REPORTED AS STOMATOLOGICALS, MOUTH PREPARATIONS.
     Route: 048
     Dates: start: 20070901

REACTIONS (1)
  - INTESTINAL PERFORATION [None]
